FAERS Safety Report 26009431 (Version 2)
Quarter: 2025Q4

REPORT INFORMATION
  Report Type: Spontaneous
  Country: US (occurrence: US)
  Receive Date: 20251107
  Receipt Date: 20251215
  Transmission Date: 20260118
  Serious: No
  Sender: ROCHE
  Company Number: US-ROCHE-10000425105

PATIENT
  Sex: Female

DRUGS (1)
  1. XOLAIR [Suspect]
     Active Substance: OMALIZUMAB
     Indication: Urticaria
     Dosage: FORM STRENGTH: 300MG/2ML
     Route: 058
     Dates: start: 202302

REACTIONS (2)
  - Photosensitivity reaction [Unknown]
  - Off label use [Unknown]
